FAERS Safety Report 20966201 (Version 1)
Quarter: 2022Q2

REPORT INFORMATION
  Report Type: Spontaneous
  Country: FR (occurrence: FR)
  Receive Date: 20220616
  Receipt Date: 20220616
  Transmission Date: 20220720
  Serious: Yes (Life-Threatening)
  Sender: FDA-Public Use
  Company Number: None

PATIENT
  Sex: Female

DRUGS (2)
  1. NOREPINEPHRINE [Suspect]
     Active Substance: NOREPINEPHRINE
     Indication: Wrong product administered
     Dosage: UNIT DOSE : 1 DOSAGE FORMS, FREQUENCY TIME : 1 TOTAL, THERAPY DURATION : 1 DAYS
     Route: 042
     Dates: start: 20220422, end: 20220422
  2. PHLOROGLUCINOL [Suspect]
     Active Substance: PHLOROGLUCINOL
     Dosage: NOT ADMINISTERED

REACTIONS (3)
  - Hypertension [Recovered/Resolved]
  - Bradycardia [Recovered/Resolved]
  - Wrong product administered [Recovered/Resolved]

NARRATIVE: CASE EVENT DATE: 20220422
